FAERS Safety Report 6674298-3 (Version None)
Quarter: 2010Q2

REPORT INFORMATION
  Report Type: 
  Country: None (occurrence: None)
  Receive Date: 20100409
  Receipt Date: 20100329
  Transmission Date: 20101027
  Serious: Yes (Other)
  Sender: FDA-Public Use
  Company Number: JP-PFIZER INC-2010041439

PATIENT

DRUGS (1)
  1. UNASYN [Suspect]
     Route: 042

REACTIONS (1)
  - BLOOD GLUCOSE INCREASED [None]
